FAERS Safety Report 9837151 (Version 2)
Quarter: 2014Q1

REPORT INFORMATION
  Report Type: Report from Study
  Country: CA (occurrence: CA)
  Receive Date: 20140123
  Receipt Date: 20140123
  Transmission Date: 20141002
  Serious: Yes (Other)
  Sender: FDA-Public Use
  Company Number: CA-ABBVIE-13P-028-1183972-00

PATIENT
  Sex: Male

DRUGS (2)
  1. HUMIRA [Suspect]
     Indication: CROHN^S DISEASE
     Dosage: LATEST DOSE: 06-NOV-2013
     Route: 058
     Dates: start: 20120926, end: 20131202
  2. HUMIRA [Suspect]
     Route: 058
     Dates: start: 20140101

REACTIONS (2)
  - Hernia [Not Recovered/Not Resolved]
  - Pain [Not Recovered/Not Resolved]
